FAERS Safety Report 13608115 (Version 1)
Quarter: 2017Q2

REPORT INFORMATION
  Report Type: Spontaneous
  Country: PE (occurrence: PE)
  Receive Date: 20170602
  Receipt Date: 20170602
  Transmission Date: 20170830
  Serious: Yes (Other)
  Sender: FDA-Public Use
  Company Number: PE-PFIZER INC-2017237633

PATIENT
  Sex: Male

DRUGS (1)
  1. LIPITOR [Suspect]
     Active Substance: ATORVASTATIN CALCIUM
     Dosage: 80 MG( 1 TABLET), DAILY

REACTIONS (6)
  - Malaise [Unknown]
  - Headache [Unknown]
  - Neoplasm malignant [Unknown]
  - Low density lipoprotein increased [Unknown]
  - Impatience [Unknown]
  - Feeling abnormal [Unknown]
